FAERS Safety Report 4959553-7 (Version None)
Quarter: 2006Q1

REPORT INFORMATION
  Report Type: 
  Country: None (occurrence: None)
  Receive Date: 20060201
  Receipt Date: 20051121
  Transmission Date: 20060701
  Serious: No
  Sender: FDA-Public Use
  Company Number: 2005PV004711

PATIENT
  Age: 40 Year
  Sex: Female

DRUGS (1)
  1. BYETTA [Suspect]
     Indication: DIABETES MELLITUS
     Dosage: 10 MCG;QD;SC
     Route: 058
     Dates: start: 20051120

REACTIONS (2)
  - DECREASED APPETITE [None]
  - NAUSEA [None]
